FAERS Safety Report 11535180 (Version 1)
Quarter: 2015Q3

REPORT INFORMATION
  Report Type: Spontaneous
  Country: US (occurrence: None)
  Receive Date: 20150921
  Receipt Date: 20150921
  Transmission Date: 20151125
  Serious: Yes (Life-Threatening, Hospitalization)
  Sender: FDA-Public Use
  Company Number: None

PATIENT
  Age: 74 Year
  Sex: Male

DRUGS (1)
  1. REMICADE [Suspect]
     Active Substance: INFLIXIMAB
     Indication: RHEUMATOID ARTHRITIS
     Dosage: 397MG  Q2W  IV
     Route: 042
     Dates: start: 20150701, end: 20150805

REACTIONS (3)
  - Lung disorder [None]
  - Dyspnoea [None]
  - Respiratory failure [None]

NARRATIVE: CASE EVENT DATE: 20150805
